FAERS Safety Report 25077866 (Version 1)
Quarter: 2025Q1

REPORT INFORMATION
  Report Type: Report from Study
  Country: BR (occurrence: BR)
  Receive Date: 20250314
  Receipt Date: 20250314
  Transmission Date: 20250409
  Serious: Yes (Other)
  Sender: BIOVITRUM
  Company Number: BR-ASTRAZENECA-202503SAM006216BR

PATIENT
  Sex: Female
  Weight: 2.55 kg

DRUGS (1)
  1. PALIVIZUMAB [Suspect]
     Active Substance: PALIVIZUMAB
     Indication: Prophylaxis
     Route: 030
     Dates: start: 20250107

REACTIONS (1)
  - Haematochezia [Recovered/Resolved]

NARRATIVE: CASE EVENT DATE: 20250201
